FAERS Safety Report 11338519 (Version 1)
Quarter: 2015Q3

REPORT INFORMATION
  Report Type: Spontaneous
  Country: BR (occurrence: BR)
  Receive Date: 20150804
  Receipt Date: 20150804
  Transmission Date: 20151125
  Serious: Yes (Hospitalization, Other)
  Sender: FDA-Public Use
  Company Number: PHHY2015BR093776

PATIENT
  Age: 87 Year
  Sex: Female
  Weight: 50 kg

DRUGS (1)
  1. ACLASTA [Suspect]
     Active Substance: ZOLEDRONIC ACID
     Indication: OSTEOPOROSIS
     Dosage: 5 MG/100 ML (1 DOSE)
     Route: 065
     Dates: start: 201311

REACTIONS (4)
  - Spinal pain [Not Recovered/Not Resolved]
  - Femur fracture [Recovered/Resolved]
  - Spinal disorder [Unknown]
  - Fall [Unknown]

NARRATIVE: CASE EVENT DATE: 201405
